FAERS Safety Report 7438487-2 (Version None)
Quarter: 2011Q2

REPORT INFORMATION
  Report Type: 
  Country: None (occurrence: None)
  Receive Date: 20110426
  Receipt Date: 20110421
  Transmission Date: 20111010
  Serious: Yes (Other)
  Sender: FDA-Public Use
  Company Number: US-PFIZER INC-2011087744

PATIENT
  Age: 64 Year
  Sex: Female

DRUGS (1)
  1. GEODON [Suspect]
     Dosage: 40 MG, UNK

REACTIONS (2)
  - SEPSIS [None]
  - NEUROLEPTIC MALIGNANT SYNDROME [None]
